FAERS Safety Report 6457570-1 (Version None)
Quarter: 2009Q4

REPORT INFORMATION
  Report Type: 
  Country: None (occurrence: None)
  Receive Date: 20091125
  Receipt Date: 20091116
  Transmission Date: 20100525
  Serious: Yes (Other)
  Sender: FDA-Public Use
  Company Number: PHEH2009US09520

PATIENT
  Sex: Male
  Weight: 108.39 kg

DRUGS (18)
  1. TEKTURNA [Suspect]
     Indication: HYPERTENSION
     Dosage: 150 MG, QD OR 300MG 1/2/D
     Route: 048
     Dates: start: 20080301, end: 20090801
  2. HYDROCHLOROTHIAZIDE [Concomitant]
     Dosage: 25 MG, 1 QOD
  3. LOTREL [Concomitant]
     Dosage: AMLO5/BENAZ20, 1 QD
  4. LOVAZA [Concomitant]
     Dosage: 1 GM, BID
  5. VITAMINS NOS [Concomitant]
     Dosage: UNK
  6. ULTRAM [Concomitant]
     Dosage: 50 1-2, TID PRN
  7. LODINE XL [Concomitant]
     Indication: ARTHROPATHY
     Dosage: 400 MG, 1 BID PRN
  8. ASPIRIN [Concomitant]
     Dosage: 81 MG, 1 QD
  9. LODRANE [Concomitant]
     Dosage: 24 UNK, 1 QD
  10. LIPITOR [Concomitant]
     Dosage: 40 MG, 1 QD
  11. EXFORGE [Concomitant]
     Dosage: AMLO5/VAL160, UNK
  12. COSAMIN DS [Concomitant]
  13. SKELAXIN [Concomitant]
     Dosage: 800 MG 1/2-1, QID PRN
     Route: 048
  14. XYZAL [Concomitant]
     Dosage: 5 MG 1, QD
     Route: 048
  15. LAMISIL                            /00992601/ [Concomitant]
     Dosage: 250 MG 1, QD
  16. QUININE SULFATE [Concomitant]
     Indication: MUSCLE SPASMS
     Dosage: 300 MG 1, QHS
  17. FLOMAX [Concomitant]
     Dosage: 4 MG, 1 QD
  18. VIAGRA [Concomitant]
     Dosage: 50 MG, UNK

REACTIONS (2)
  - CONDITION AGGRAVATED [None]
  - NEPHROLITHIASIS [None]
